FAERS Safety Report 5881594-6 (Version None)
Quarter: 2008Q3

REPORT INFORMATION
  Report Type: 
  Country: None (occurrence: None)
  Receive Date: 20080912
  Receipt Date: 20080702
  Transmission Date: 20090109
  Serious: No
  Sender: FDA-Public Use
  Company Number: US-ABBOTT-08P-163-0460882-00

PATIENT
  Sex: Male
  Weight: 95.34 kg

DRUGS (5)
  1. HUMIRA [Suspect]
     Indication: CROHN'S DISEASE
     Dosage: 1 PEN, EVERY TWO WEEKS
     Route: 058
     Dates: start: 20070301, end: 20071201
  2. HUMIRA [Suspect]
     Route: 058
     Dates: start: 20080301
  3. RIFAXIMIN [Concomitant]
     Indication: CROHN'S DISEASE
     Route: 048
  4. SERENOA REPENS [Concomitant]
     Indication: SUPPLEMENTATION THERAPY
     Dosage: DAILY
     Route: 048
  5. FISH OIL [Concomitant]
     Indication: SUPPLEMENTATION THERAPY
     Route: 048

REACTIONS (7)
  - ANAL ABSCESS [None]
  - ECZEMA [None]
  - NODULE [None]
  - NODULE ON EXTREMITY [None]
  - PSORIASIS [None]
  - SINUSITIS [None]
  - SKIN DISORDER [None]
